FAERS Safety Report 7595104-9 (Version None)
Quarter: 2011Q2

REPORT INFORMATION
  Report Type: 
  Country: None (occurrence: None)
  Receive Date: 20110620
  Receipt Date: 20110315
  Transmission Date: 20111010
  Serious: Yes (Hospitalization)
  Sender: FDA-Public Use
  Company Number: UTC-005735

PATIENT
  Age: 66 Year
  Sex: Female
  Weight: 61.36 kg

DRUGS (4)
  1. REVATIO [Concomitant]
  2. TYVASO [Suspect]
     Indication: PULMONARY ARTERIAL HYPERTENSION
     Dosage: 216 MCG (54 MCG, 4 IN 1 D), INHALATION
     Route: 055
     Dates: start: 20091124
  3. LETARIS (AMBRISENTAN) [Concomitant]
  4. COUMADIN [Concomitant]

REACTIONS (1)
  - TENDON INJURY [None]
